FAERS Safety Report 19933064 (Version 2)
Quarter: 2021Q4

REPORT INFORMATION
  Report Type: Spontaneous
  Country: US (occurrence: US)
  Receive Date: 20211008
  Receipt Date: 20211013
  Transmission Date: 20220303
  Serious: Yes (Hospitalization)
  Sender: FDA-Public Use
  Company Number: US-BAXTER-2021BAX031500

PATIENT
  Age: 84 Year
  Sex: Male

DRUGS (1)
  1. EXTRANEAL [Suspect]
     Active Substance: CALCIUM CHLORIDE\ICODEXTRIN\MAGNESIUM CHLORIDE\SODIUM CHLORIDE\SODIUM LACTATE
     Indication: Peritoneal dialysis
     Route: 033
     Dates: start: 202108, end: 20210905

REACTIONS (2)
  - Road traffic accident [Unknown]
  - Catheter site infection [Unknown]

NARRATIVE: CASE EVENT DATE: 20210901
